FAERS Safety Report 6140809-X (Version None)
Quarter: 2009Q2

REPORT INFORMATION
  Report Type: 
  Country: None (occurrence: None)
  Receive Date: 20090402
  Receipt Date: 20090402
  Transmission Date: 20091009
  Serious: Yes (Other)
  Sender: FDA-Public Use
  Company Number: US-PFIZER INC-2009172088

PATIENT
  Age: 73 Year
  Sex: Male

DRUGS (1)
  1. DETROL LA [Suspect]
     Dates: start: 20090213

REACTIONS (1)
  - BLOOD URINE PRESENT [None]
